FAERS Safety Report 7788252-1 (Version None)
Quarter: 2011Q3

REPORT INFORMATION
  Report Type: 
  Country: None (occurrence: None)
  Receive Date: 20110930
  Receipt Date: 20110919
  Transmission Date: 20111222
  Serious: Yes (Hospitalization, Other)
  Sender: FDA-Public Use
  Company Number: US-ELI_LILLY_AND_COMPANY-US201109005519

PATIENT
  Sex: Female

DRUGS (2)
  1. FORTEO [Suspect]
     Indication: OSTEOPOROSIS
     Dosage: 20 UG, QD
     Route: 065
     Dates: start: 20110301
  2. ANALGESICS [Concomitant]

REACTIONS (5)
  - SYNCOPE [None]
  - JOINT INJURY [None]
  - HEAD INJURY [None]
  - SPINAL COLUMN INJURY [None]
  - FALL [None]
